FAERS Safety Report 25773358 (Version 2)
Quarter: 2025Q4

REPORT INFORMATION
  Report Type: Spontaneous
  Country: CN (occurrence: CN)
  Receive Date: 20250908
  Receipt Date: 20251015
  Transmission Date: 20260117
  Serious: Yes (Life-Threatening, Hospitalization, Other)
  Sender: PFIZER
  Company Number: CN-MLMSERVICE-20250808-PI608787-00256-2

PATIENT
  Age: 77 Year
  Sex: Female

DRUGS (4)
  1. PANTOPRAZOLE [Suspect]
     Active Substance: PANTOPRAZOLE
     Indication: Melaena
     Dosage: UNK
  2. SOMATOSTATIN [Suspect]
     Active Substance: SOMATOSTATIN
     Indication: Melaena
     Dosage: UNK
     Route: 065
  3. ASPIRIN [Suspect]
     Active Substance: ASPIRIN
     Indication: Cerebral infarction
     Dosage: LONG-TERM
     Route: 065
  4. ALBUMIN HUMAN [Concomitant]
     Active Substance: ALBUMIN HUMAN
     Dosage: ALBUMIN SUPPLEMENTATION

REACTIONS (2)
  - Clostridium difficile colitis [Unknown]
  - Gastrointestinal ulcer haemorrhage [Unknown]
